FAERS Safety Report 6817725-0 (Version None)
Quarter: 2010Q3

REPORT INFORMATION
  Report Type: 
  Country: None (occurrence: None)
  Receive Date: 20100706
  Receipt Date: 20100624
  Transmission Date: 20110219
  Serious: Yes (Hospitalization)
  Sender: FDA-Public Use
  Company Number: JP-PFIZER INC-2010054603

PATIENT
  Age: 76 Year
  Sex: Male
  Weight: 60 kg

DRUGS (7)
  1. SUNITINIB MALATE [Suspect]
     Indication: GASTROINTESTINAL STROMAL TUMOUR
     Dosage: 50 MG, 1X/DAY
     Route: 048
     Dates: start: 20091104, end: 20091117
  2. SUNITINIB MALATE [Suspect]
     Dosage: 37.5 MG, 1X/DAY
     Route: 048
     Dates: start: 20091228, end: 20100104
  3. MYSLEE [Concomitant]
     Route: 048
  4. PURSENNID [Concomitant]
     Route: 048
  5. GASCON [Concomitant]
     Route: 048
  6. PREDONINE [Concomitant]
     Route: 048
  7. RESPLEN [Concomitant]
     Route: 048
     Dates: start: 20091109, end: 20091201

REACTIONS (6)
  - DECREASED APPETITE [None]
  - MALAISE [None]
  - NEUTROPHIL COUNT DECREASED [None]
  - PLATELET COUNT DECREASED [None]
  - PYREXIA [None]
  - WHITE BLOOD CELL COUNT DECREASED [None]
